FAERS Safety Report 8362478-0 (Version None)
Quarter: 2012Q2

REPORT INFORMATION
  Report Type: 
  Country: None (occurrence: None)
  Receive Date: 20120514
  Receipt Date: 20120514
  Transmission Date: 20120825
  Serious: Yes (Hospitalization, Disabling)
  Sender: FDA-Public Use
  Company Number: None

PATIENT
  Age: 46 Year
  Sex: Female
  Weight: 66.6788 kg

DRUGS (1)
  1. VIVELLE-DOT [Suspect]
     Indication: ARTIFICIAL MENOPAUSE
     Dosage: 1 2 TIMES TRANSDERMAL
     Route: 062
     Dates: start: 20110416, end: 20120511

REACTIONS (5)
  - ANXIETY [None]
  - PANIC DISORDER [None]
  - PALPITATIONS [None]
  - HOT FLUSH [None]
  - BACK PAIN [None]
